FAERS Safety Report 12015096 (Version 1)
Quarter: 2016Q1

REPORT INFORMATION
  Report Type: Spontaneous
  Country: US (occurrence: US)
  Receive Date: 20160205
  Receipt Date: 20160205
  Transmission Date: 20160526
  Serious: No
  Sender: FDA-Public Use
  Company Number: US-AMGEN-USASP2015017171

PATIENT

DRUGS (4)
  1. CARBOPLATIN. [Concomitant]
     Active Substance: CARBOPLATIN
     Indication: NEOPLASM MALIGNANT
     Dosage: UNK, 6 TREATMENT, EVERY 21 DAYS
  2. NEULASTA [Suspect]
     Active Substance: PEGFILGRASTIM
     Indication: PROPHYLAXIS
     Dosage: UNK, 24 HOURS AFTER CHEMO
     Route: 065
  3. DEXAMETHASONE. [Concomitant]
     Active Substance: DEXAMETHASONE
     Indication: NEOPLASM MALIGNANT
     Dosage: UNK, 6 TREATMENT, EVERY 21 DAYS
  4. TAXOL [Suspect]
     Active Substance: PACLITAXEL
     Indication: NEOPLASM MALIGNANT
     Dosage: UNK, 6 TREATMENT, EVERY 21 DAYS
     Route: 065

REACTIONS (15)
  - Decreased appetite [Unknown]
  - Dyspepsia [Unknown]
  - Dizziness [Unknown]
  - Neuropathy peripheral [Recovered/Resolved]
  - Bone pain [Unknown]
  - Tremor [Unknown]
  - Dysgeusia [Unknown]
  - Anaemia [Unknown]
  - Constipation [Unknown]
  - Abdominal distension [Unknown]
  - Platelet count decreased [Unknown]
  - Alopecia [Unknown]
  - Diarrhoea [Unknown]
  - Hypotension [Unknown]
  - Fatigue [Unknown]
